FAERS Safety Report 20115477 (Version 2)
Quarter: 2025Q2

REPORT INFORMATION
  Report Type: Report from Study
  Country: FR (occurrence: FR)
  Receive Date: 20211126
  Receipt Date: 20250603
  Transmission Date: 20250717
  Serious: Yes (Other)
  Sender: AUROBINDO
  Company Number: FR-CADILA HEALTHCARE LIMITED-FR-ZYDUS-071301

PATIENT
  Age: 73 Year
  Sex: Male

DRUGS (4)
  1. ENTECAVIR [Suspect]
     Active Substance: ENTECAVIR
     Indication: Antiviral treatment
     Route: 065
  2. FLUDARABINE [Concomitant]
     Active Substance: FLUDARABINE PHOSPHATE
     Indication: Chronic lymphocytic leukaemia
     Route: 065
  3. RITUXIMAB [Concomitant]
     Active Substance: RITUXIMAB
     Indication: Chronic lymphocytic leukaemia
     Route: 065
  4. CYCLOPHOSPHAMIDE [Concomitant]
     Active Substance: CYCLOPHOSPHAMIDE
     Indication: Chronic lymphocytic leukaemia
     Route: 065

REACTIONS (1)
  - Therapy partial responder [Unknown]
